FAERS Safety Report 14716760 (Version 1)
Quarter: 2018Q2

REPORT INFORMATION
  Report Type: Report from Study
  Country: US (occurrence: US)
  Receive Date: 20180404
  Receipt Date: 20180404
  Transmission Date: 20180711
  Serious: Yes (Other)
  Sender: FDA-Public Use
  Company Number: US-GILEAD-2018-0329414

PATIENT
  Age: 72 Year
  Sex: Male

DRUGS (4)
  1. IDELALISIB [Suspect]
     Active Substance: IDELALISIB
     Indication: B-CELL LYMPHOMA
     Dosage: 150 MG, QD
     Route: 048
     Dates: start: 20170908, end: 20180323
  2. ARTIFICIAL TEARS                   /00222401/ [Concomitant]
     Active Substance: PROPYLENE GLYCOL
     Dosage: NOT PROVIDED, OTC EYE DROPS AS NEEDED
  3. BENADRYL [Concomitant]
     Active Substance: DIPHENHYDRAMINE HYDROCHLORIDE
     Dosage: NOT PROVIDED, CAPSULE BY MOUTH AS NEEDED
  4. RUBBING ALCOHOL [Concomitant]
     Active Substance: ISOPROPYL ALCOHOL
     Dosage: NOT PROVIDED, TOPICAL

REACTIONS (7)
  - Dry eye [Not Recovered/Not Resolved]
  - Pruritus generalised [Recovered/Resolved]
  - Neoplasm malignant [Not Recovered/Not Resolved]
  - Scab [Not Recovered/Not Resolved]
  - Frustration tolerance decreased [Not Recovered/Not Resolved]
  - Drug ineffective [Not Recovered/Not Resolved]
  - Feeling abnormal [Not Recovered/Not Resolved]

NARRATIVE: CASE EVENT DATE: 201803
